FAERS Safety Report 11444946 (Version 1)
Quarter: 2015Q3

REPORT INFORMATION
  Report Type: Report from Study
  Country: JP (occurrence: JP)
  Receive Date: 20150902
  Receipt Date: 20150902
  Transmission Date: 20151125
  Serious: Yes (Other)
  Sender: FDA-Public Use
  Company Number: PHHY2014JP148595

PATIENT
  Age: 36 Year
  Sex: Female
  Weight: 114 kg

DRUGS (50)
  1. CLOZARIL [Suspect]
     Active Substance: CLOZAPINE
     Dosage: 150 MG, QD
     Route: 048
     Dates: start: 20121002, end: 20121004
  2. CLOZARIL [Suspect]
     Active Substance: CLOZAPINE
     Dosage: 250 MG, QD
     Route: 048
     Dates: start: 20121024, end: 20121106
  3. CLOZARIL [Suspect]
     Active Substance: CLOZAPINE
     Dosage: 300 MG, QD
     Route: 048
     Dates: start: 20121107, end: 20121120
  4. CLOZARIL [Suspect]
     Active Substance: CLOZAPINE
     Dosage: 425 MG, QD
     Route: 048
     Dates: start: 20121205, end: 20121211
  5. CLOZARIL [Suspect]
     Active Substance: CLOZAPINE
     Dosage: 300 MG, QD
     Route: 048
     Dates: start: 20140620
  6. PHENOBAL [Concomitant]
     Active Substance: PHENOBARBITAL
     Dosage: 30 MG, QD
     Route: 048
     Dates: start: 20121103, end: 20121109
  7. MAGNESIUM OXIDE. [Concomitant]
     Active Substance: MAGNESIUM OXIDE
     Indication: PRODUCT USED FOR UNKNOWN INDICATION
     Dosage: 990 MG, QD
     Route: 048
     Dates: start: 20120918, end: 20130318
  8. DEPAKENE [Concomitant]
     Active Substance: VALPROIC ACID
     Dosage: 800 MG, QD
     Route: 048
     Dates: start: 20130517, end: 20140619
  9. CLOZARIL [Suspect]
     Active Substance: CLOZAPINE
     Dosage: 400 MG, QD
     Route: 048
     Dates: start: 20121128, end: 20121204
  10. SILECE [Concomitant]
     Active Substance: FLUNITRAZEPAM
     Indication: SCHIZOPHRENIA, DISORGANISED TYPE
     Dosage: 2 MG, QD
     Route: 048
     Dates: start: 20120918, end: 20121120
  11. LIPITOR [Concomitant]
     Active Substance: ATORVASTATIN CALCIUM
     Indication: PRODUCT USED FOR UNKNOWN INDICATION
     Dosage: 5 MG, QD
     Route: 048
     Dates: start: 20120918, end: 20130318
  12. DEPAKENE [Concomitant]
     Active Substance: VALPROIC ACID
     Dosage: 800 MG, QD
     Route: 048
     Dates: start: 20121226, end: 20130318
  13. PURSENNID [Concomitant]
     Active Substance: SENNOSIDES A AND B
     Indication: PRODUCT USED FOR UNKNOWN INDICATION
     Dosage: 24 MG, QD
     Route: 048
     Dates: start: 20120918, end: 20130115
  14. LIPITOR [Concomitant]
     Active Substance: ATORVASTATIN CALCIUM
     Dosage: 5 MG, QD
     Route: 048
     Dates: start: 20130517, end: 20140904
  15. FERROMIA [Concomitant]
     Active Substance: FERROUS CITRATE
     Indication: BLOOD IRON DECREASED
     Dosage: 100 MG, QD
     Route: 048
     Dates: start: 20130913
  16. SEROQUEL [Concomitant]
     Active Substance: QUETIAPINE FUMARATE
     Indication: INSOMNIA
  17. QUETIAPINE [Concomitant]
     Active Substance: QUETIAPINE
     Indication: SCHIZOPHRENIA, DISORGANISED TYPE
     Dosage: 25 MG, QD
     Route: 048
     Dates: start: 20140808, end: 20140820
  18. CLOZARIL [Suspect]
     Active Substance: CLOZAPINE
     Dosage: 125 MG, QD
     Route: 048
     Dates: start: 20120929, end: 20121001
  19. SILECE [Concomitant]
     Active Substance: FLUNITRAZEPAM
     Dosage: 1 MG, QD
     Route: 048
     Dates: start: 20121121, end: 20121204
  20. CALONAL [Concomitant]
     Active Substance: ACETAMINOPHEN
     Indication: HEADACHE
     Dosage: 200 MG, QD
     Route: 065
     Dates: start: 20130621, end: 20130628
  21. CLOZARIL [Suspect]
     Active Substance: CLOZAPINE
     Dosage: 25 MG, QD
     Route: 048
     Dates: start: 20120919, end: 20120921
  22. CLOZARIL [Suspect]
     Active Substance: CLOZAPINE
     Dosage: 275 MG, QD
     Route: 048
     Dates: start: 20131115, end: 20140206
  23. PHENOBAL [Concomitant]
     Active Substance: PHENOBARBITAL
     Indication: SCHIZOPHRENIA, DISORGANISED TYPE
     Dosage: 90 MG, QD
     Route: 048
     Dates: start: 20120918, end: 20120930
  24. PHENOBAL [Concomitant]
     Active Substance: PHENOBARBITAL
     Dosage: 75 MG, QD
     Route: 048
     Dates: start: 20121001, end: 20121011
  25. DEPAKENE [Concomitant]
     Active Substance: VALPROIC ACID
     Dosage: 400 MG, QD
     Route: 048
     Dates: start: 20140620
  26. PURSENNID [Concomitant]
     Active Substance: SENNOSIDES A AND B
     Dosage: 36 MG, QD
     Route: 048
     Dates: start: 20130517
  27. LENDORMIN [Concomitant]
     Active Substance: BROTIZOLAM
     Indication: SCHIZOPHRENIA, DISORGANISED TYPE
     Dosage: 0.25 MG, QD
     Route: 048
     Dates: start: 20130517, end: 20130815
  28. CLOZARIL [Suspect]
     Active Substance: CLOZAPINE
     Indication: SCHIZOPHRENIA, DISORGANISED TYPE
     Dosage: 12.5 MG, QD
     Route: 048
     Dates: start: 20120918, end: 20120918
  29. CLOZARIL [Suspect]
     Active Substance: CLOZAPINE
     Dosage: 175 MG, QD
     Route: 048
     Dates: start: 20121005, end: 20121007
  30. CLOZARIL [Suspect]
     Active Substance: CLOZAPINE
     Dosage: 200 MG, QD
     Route: 048
     Dates: start: 20121008, end: 20121023
  31. CLOZARIL [Suspect]
     Active Substance: CLOZAPINE
     Dosage: 275 MG, QD
     Route: 048
     Dates: start: 20140307, end: 20140619
  32. SENNOSIDE [Concomitant]
     Active Substance: SENNOSIDES
     Dosage: 36 MG, QD
     Route: 048
     Dates: end: 20130318
  33. PHENOBAL [Concomitant]
     Active Substance: PHENOBARBITAL
     Dosage: 15 MG, QD
     Route: 048
     Dates: start: 20121110, end: 20121116
  34. MAGNESIUM OXIDE. [Concomitant]
     Active Substance: MAGNESIUM OXIDE
     Dosage: 990 MG, QD
     Route: 048
     Dates: start: 20130517
  35. DEPAKENE [Concomitant]
     Active Substance: VALPROIC ACID
     Dosage: 600 MG, QD
     Route: 048
     Dates: start: 20121219, end: 20121225
  36. PURSENNID [Concomitant]
     Active Substance: SENNOSIDES A AND B
     Dosage: 36 MG, QD
     Route: 048
     Dates: start: 20130116, end: 20130318
  37. CLOZARIL [Suspect]
     Active Substance: CLOZAPINE
     Dosage: 75 MG, QD
     Route: 048
     Dates: start: 20120925, end: 20120926
  38. CLOZARIL [Suspect]
     Active Substance: CLOZAPINE
     Dosage: 250 MG, QD
     Route: 048
     Dates: start: 20140207, end: 20140306
  39. SENNOSIDE [Concomitant]
     Active Substance: SENNOSIDES
     Indication: PRODUCT USED FOR UNKNOWN INDICATION
     Dosage: 24 MG, QD
     Route: 048
     Dates: start: 20120918
  40. PHENOBAL [Concomitant]
     Active Substance: PHENOBARBITAL
     Dosage: 60 MG, QD
     Route: 048
     Dates: start: 20121012, end: 20121026
  41. LENDORMIN [Concomitant]
     Active Substance: BROTIZOLAM
     Dosage: 0.25 MG, QD
     Route: 048
     Dates: start: 20140110, end: 20140130
  42. CLOZARIL [Suspect]
     Active Substance: CLOZAPINE
     Dosage: 50 MG, QD
     Route: 048
     Dates: start: 20120922, end: 20120924
  43. CLOZARIL [Suspect]
     Active Substance: CLOZAPINE
     Dosage: 100 MG, QD
     Route: 048
     Dates: start: 20120927, end: 20120928
  44. CLOZARIL [Suspect]
     Active Substance: CLOZAPINE
     Dosage: 350 MG, QD
     Route: 048
     Dates: start: 20121121, end: 20121127
  45. CLOZARIL [Suspect]
     Active Substance: CLOZAPINE
     Dosage: 300 MG, QD
     Route: 048
     Dates: start: 20121212, end: 20131114
  46. PHENOBAL [Concomitant]
     Active Substance: PHENOBARBITAL
     Dosage: 45 MG, QD
     Route: 048
     Dates: start: 20121027, end: 20121102
  47. DEPAKENE [Concomitant]
     Active Substance: VALPROIC ACID
     Indication: SCHIZOPHRENIA, DISORGANISED TYPE
     Dosage: 400 MG, QD
     Route: 048
     Dates: start: 20121212, end: 20121218
  48. SEROQUEL [Concomitant]
     Active Substance: QUETIAPINE FUMARATE
     Indication: SCHIZOPHRENIA, DISORGANISED TYPE
     Dosage: 25 MG, QD
     Route: 048
     Dates: start: 20140307, end: 20140807
  49. QUETIAPINE [Concomitant]
     Active Substance: QUETIAPINE
     Indication: INSOMNIA
  50. ATORVASTATIN [Concomitant]
     Active Substance: ATORVASTATIN
     Indication: PRODUCT USED FOR UNKNOWN INDICATION
     Dosage: 5 MG, QD
     Route: 048
     Dates: start: 20140905

REACTIONS (8)
  - Insomnia [Recovered/Resolved]
  - Cytopenia [Unknown]
  - Eye luxation [Recovered/Resolved]
  - Salivary hypersecretion [Not Recovered/Not Resolved]
  - Depressed level of consciousness [Recovered/Resolved]
  - Screaming [Unknown]
  - Seizure [Recovered/Resolved]
  - Blood pressure increased [Unknown]

NARRATIVE: CASE EVENT DATE: 20121018
